FAERS Safety Report 22017440 (Version 1)
Quarter: 2023Q1

REPORT INFORMATION
  Report Type: Spontaneous
  Country: US (occurrence: US)
  Receive Date: 20230221
  Receipt Date: 20230221
  Transmission Date: 20230418
  Serious: No
  Sender: FDA-Public Use
  Company Number: US-ELI_LILLY_AND_COMPANY-US202302001978

PATIENT
  Age: 47 Year
  Sex: Female

DRUGS (4)
  1. REYVOW [Suspect]
     Active Substance: LASMIDITAN
     Indication: Migraine
     Dosage: UNK UNK, UNKNOWN
     Route: 048
  2. PHENERGAN [Concomitant]
     Active Substance: PROMETHAZINE HYDROCHLORIDE
     Indication: Migraine
     Dosage: 60 MG
  3. SPIRONOLACTONE [Concomitant]
     Active Substance: SPIRONOLACTONE
     Indication: Product used for unknown indication
     Dosage: 50 MG, DAILY
  4. QULIPTA [Concomitant]
     Active Substance: ATOGEPANT
     Indication: Migraine

REACTIONS (9)
  - Migraine [Unknown]
  - Illness [Unknown]
  - Hallucination [Unknown]
  - Dizziness [Unknown]
  - Disorientation [Unknown]
  - Somnolence [Unknown]
  - Hypoaesthesia [Unknown]
  - Fatigue [Unknown]
  - Paraesthesia [Unknown]

NARRATIVE: CASE EVENT DATE: 20221001
